FAERS Safety Report 15955169 (Version 3)
Quarter: 2020Q1

REPORT INFORMATION
  Report Type: Spontaneous
  Country: US (occurrence: US)
  Receive Date: 20190213
  Receipt Date: 20200212
  Transmission Date: 20200409
  Serious: No
  Sender: FDA-Public Use
  Company Number: US-PFIZER INC-2019061956

PATIENT
  Age: 61 Year
  Sex: Female

DRUGS (5)
  1. OMEPRAZOLE. [Suspect]
     Active Substance: OMEPRAZOLE
     Dosage: UNK
  2. PSYLLIUM [PLANTAGO OVATA] [Suspect]
     Active Substance: HERBALS\PLANTAGO OVATA LEAF
     Dosage: UNK
  3. NEURONTIN [Suspect]
     Active Substance: GABAPENTIN
     Dosage: UNK
  4. NEXIUM 24HR [Suspect]
     Active Substance: ESOMEPRAZOLE MAGNESIUM
     Dosage: UNK
  5. CEFIXIME. [Suspect]
     Active Substance: CEFIXIME
     Dosage: UNK

REACTIONS (1)
  - Drug hypersensitivity [Unknown]
